FAERS Safety Report 5390419-7 (Version None)
Quarter: 2007Q3

REPORT INFORMATION
  Report Type: 
  Country: None (occurrence: None)
  Receive Date: 20070718
  Receipt Date: 20060907
  Transmission Date: 20080115
  Serious: No
  Sender: FDA-Public Use
  Company Number: US-KINGPHARMUSA00001-K200601140

PATIENT

DRUGS (3)
  1. LEVOXYL [Suspect]
     Indication: HYPOTHYROIDISM
     Route: 048
     Dates: start: 20040101, end: 20060401
  2. LEVOXYL [Suspect]
     Route: 048
     Dates: start: 20060401, end: 20060601
  3. LEVOXYL [Suspect]
     Dosage: 50 MCG QIW, 75 MCG TIW
     Route: 048
     Dates: start: 20060601

REACTIONS (3)
  - EXERCISE TOLERANCE DECREASED [None]
  - FATIGUE [None]
  - SENSATION OF HEAVINESS [None]
